FAERS Safety Report 13098909 (Version 1)
Quarter: 2017Q1

REPORT INFORMATION
  Report Type: Report from Study
  Country: US (occurrence: US)
  Receive Date: 20170109
  Receipt Date: 20170109
  Transmission Date: 20170428
  Serious: Yes (Other)
  Sender: FDA-Public Use
  Company Number: US-MYLANLABS-2017M1000243

PATIENT

DRUGS (2)
  1. EPINEPHRINE. [Suspect]
     Active Substance: EPINEPHRINE
     Indication: NERVE BLOCK
     Dosage: 15 ML OF 0.5% BUPIVACAINE WITH EPINEPHRINE (1:200,000)
     Route: 065
  2. BUPIVACAINE. [Suspect]
     Active Substance: BUPIVACAINE
     Indication: NERVE BLOCK
     Dosage: 15 ML OF 0.5% BUPIVACAINE WITH EPINEPHRINE (1:200,000)
     Route: 065

REACTIONS (1)
  - Peripheral nerve injury [Recovering/Resolving]
